FAERS Safety Report 16782499 (Version 11)
Quarter: 2022Q2

REPORT INFORMATION
  Report Type: Report from Study
  Country: DE (occurrence: None)
  Receive Date: 20190906
  Receipt Date: 20220510
  Transmission Date: 20220721
  Serious: Yes (Hospitalization)
  Sender: FDA-Public Use
  Company Number: DE-ROCHE-2397174

PATIENT
  Age: 61 Year
  Sex: Male
  Weight: 150 kg

DRUGS (33)
  1. AUTOGENE CEVUMERAN [Suspect]
     Active Substance: AUTOGENE CEVUMERAN
     Indication: Metastatic neoplasm
     Dosage: 25 UG IN 21-DAY CYCLES.?DATE OF MOST RECENT DOSE (13 UG) PRIOR TO SAE ONSET: 26/AUG/2019?DATE OF MOS
     Route: 042
     Dates: start: 20190826
  2. AUTOGENE CEVUMERAN [Suspect]
     Active Substance: AUTOGENE CEVUMERAN
     Dosage: 13 UG IN 21-DAY CYCLES.?DATE OF MOST RECENT DOSE PRIOR TO SAE ONSET: 30/DEC/2019 FOR HEADACHE
     Route: 042
  3. ATEZOLIZUMAB [Suspect]
     Active Substance: ATEZOLIZUMAB
     Indication: Metastatic neoplasm
     Dosage: MOST RECENT DOSE ON 26/AUG/2019 (1200 MG) PRIOR TO SAE ONSET OF INFUSION RELATED REACTION.?MOST RECE
     Route: 042
     Dates: start: 20190826
  4. ACETAMINOPHEN [Concomitant]
     Active Substance: ACETAMINOPHEN
     Route: 048
     Dates: start: 20190826, end: 20190826
  5. ACETAMINOPHEN [Concomitant]
     Active Substance: ACETAMINOPHEN
     Route: 048
     Dates: start: 20200303, end: 20200303
  6. CLEMASTINE [Concomitant]
     Active Substance: CLEMASTINE
     Route: 042
     Dates: start: 20200303, end: 20200303
  7. CLEMASTINE [Concomitant]
     Active Substance: CLEMASTINE
     Route: 042
     Dates: start: 20190826, end: 20190826
  8. CIMETIDINE [Concomitant]
     Active Substance: CIMETIDINE
     Route: 042
     Dates: start: 20190826, end: 20190826
  9. CIMETIDINE [Concomitant]
     Active Substance: CIMETIDINE
     Route: 042
     Dates: start: 20200303, end: 20200303
  10. RINGERS SOLUTION [Concomitant]
     Active Substance: CALCIUM CHLORIDE\POTASSIUM CHLORIDE\SODIUM CHLORIDE
     Route: 042
     Dates: start: 20190826, end: 20190826
  11. RINGERS SOLUTION [Concomitant]
     Active Substance: CALCIUM CHLORIDE\POTASSIUM CHLORIDE\SODIUM CHLORIDE
     Route: 042
     Dates: start: 20200303, end: 20200303
  12. RAMIPRIL [Concomitant]
     Active Substance: RAMIPRIL
     Indication: Hypertension
     Route: 048
     Dates: start: 20190603
  13. AMLODIPINE [Concomitant]
     Active Substance: AMLODIPINE BESYLATE
     Indication: Hypertension
     Route: 048
     Dates: start: 20190603
  14. DOXAZOSIN [Concomitant]
     Active Substance: DOXAZOSIN MESYLATE
     Indication: Hypertension
     Route: 048
     Dates: start: 20190523
  15. IBUPROFEN [Concomitant]
     Active Substance: IBUPROFEN
     Indication: Arthralgia
     Route: 048
     Dates: start: 20190603
  16. PANTOPRAZOLE SODIUM [Concomitant]
     Active Substance: PANTOPRAZOLE SODIUM
     Indication: Gastritis
     Route: 048
     Dates: start: 20190418
  17. TESTOSTERONE [Concomitant]
     Active Substance: TESTOSTERONE
     Indication: Gonadotrophin deficiency
     Route: 058
     Dates: start: 20190805, end: 20191017
  18. TESTOSTERONE [Concomitant]
     Active Substance: TESTOSTERONE
     Route: 061
     Dates: start: 20191018
  19. PIPERACILLIN SODIUM\TAZOBACTAM SODIUM [Concomitant]
     Active Substance: PIPERACILLIN SODIUM\TAZOBACTAM SODIUM
     Indication: Infusion related reaction
     Route: 042
     Dates: start: 20190826, end: 20190827
  20. OXYCODONE [Concomitant]
     Active Substance: OXYCODONE
     Indication: Osteoarthritis
     Route: 048
     Dates: start: 201902, end: 20190828
  21. OXYCODONE [Concomitant]
     Active Substance: OXYCODONE
     Dosage: 100 MG EVERY DAY
     Route: 048
     Dates: start: 20191028, end: 20200227
  22. OXYCODONE [Concomitant]
     Active Substance: OXYCODONE
     Route: 048
     Dates: start: 20200228
  23. PREGABALIN [Concomitant]
     Active Substance: PREGABALIN
     Indication: Epididymitis
     Dosage: AND 150 MG
     Route: 048
     Dates: start: 20190923
  24. PREGABALIN [Concomitant]
     Active Substance: PREGABALIN
     Route: 048
     Dates: start: 20190723
  25. ENOXAPARIN SODIUM [Concomitant]
     Active Substance: ENOXAPARIN SODIUM
     Indication: Venous thrombosis limb
     Route: 058
     Dates: start: 20190911
  26. TESTOSTERONE [Concomitant]
     Active Substance: TESTOSTERONE
     Indication: Gonadotrophin deficiency
     Route: 061
     Dates: start: 20191018
  27. METAMIZOLE [Concomitant]
     Active Substance: METAMIZOLE
     Indication: Tumour pain
     Route: 048
     Dates: start: 20191209
  28. METAMIZOLE [Concomitant]
     Active Substance: METAMIZOLE
     Indication: Pain in extremity
  29. FUROSEMIDE [Concomitant]
     Active Substance: FUROSEMIDE
     Indication: Oedema
     Route: 048
     Dates: start: 20190925
  30. SPIRONOLACTONE [Concomitant]
     Active Substance: SPIRONOLACTONE
     Indication: Oedema
     Route: 048
     Dates: start: 20190930
  31. PREDNITOP OINTMENT [Concomitant]
     Indication: Pruritus
     Route: 061
     Dates: start: 20191230
  32. CLOTRIMAZOLE [Concomitant]
     Active Substance: CLOTRIMAZOLE
     Indication: Candida infection
     Route: 061
     Dates: start: 20191112
  33. TIVOZANIB [Concomitant]
     Active Substance: TIVOZANIB
     Indication: Neoplasm malignant
     Dates: start: 20190408, end: 20190801

REACTIONS (2)
  - Infusion related reaction [Recovered/Resolved]
  - Headache [Recovered/Resolved]

NARRATIVE: CASE EVENT DATE: 20190826
